FAERS Safety Report 6171364-6 (Version None)
Quarter: 2009Q2

REPORT INFORMATION
  Report Type: 
  Country: None (occurrence: None)
  Receive Date: 20090429
  Receipt Date: 20090422
  Transmission Date: 20091009
  Serious: Yes (Other)
  Sender: FDA-Public Use
  Company Number: AU-AMGEN-US321092

PATIENT
  Sex: Female

DRUGS (3)
  1. ARANESP [Suspect]
     Indication: RENAL FAILURE CHRONIC
     Route: 065
  2. MYCOPHENOLATE MOFETIL [Suspect]
  3. CYCLOPHOSPHAMIDE [Concomitant]

REACTIONS (1)
  - APLASIA PURE RED CELL [None]
